FAERS Safety Report 16887707 (Version 2)
Quarter: 2019Q4

REPORT INFORMATION
  Report Type: Spontaneous
  Country: IT (occurrence: IT)
  Receive Date: 20191005
  Receipt Date: 20191208
  Transmission Date: 20200122
  Serious: Yes (Hospitalization)
  Sender: FDA-Public Use
  Company Number: IT-AUROBINDO-AUR-APL-2019-064011

PATIENT
  Age: 85 Year
  Sex: Male

DRUGS (1)
  1. ZOLPIDEM [Suspect]
     Active Substance: ZOLPIDEM TARTRATE
     Indication: MENTAL DISORDER
     Dosage: 3 DOSAGE FORM, TOTAL
     Route: 048
     Dates: start: 20190725, end: 20190725

REACTIONS (3)
  - Agitation [Recovering/Resolving]
  - Medication error [Recovering/Resolving]
  - Hallucination [Recovering/Resolving]

NARRATIVE: CASE EVENT DATE: 20190725
